FAERS Safety Report 12249533 (Version 1)
Quarter: 2016Q2

REPORT INFORMATION
  Report Type: Report from Study
  Country: US (occurrence: US)
  Receive Date: 20160408
  Receipt Date: 20160408
  Transmission Date: 20160815
  Serious: Yes (Other)
  Sender: FDA-Public Use
  Company Number: US-ABBVIE-16K-163-1598329-00

PATIENT
  Age: 51 Year
  Sex: Female

DRUGS (3)
  1. HUMIRA [Suspect]
     Active Substance: ADALIMUMAB
     Indication: ANKYLOSING SPONDYLITIS
     Route: 058
     Dates: start: 2008
  2. HUMIRA [Suspect]
     Active Substance: ADALIMUMAB
     Indication: COLITIS ULCERATIVE
     Route: 058
     Dates: start: 2014, end: 201510
  3. RESTASIS [Suspect]
     Active Substance: CYCLOSPORINE
     Indication: DRY EYE
     Route: 065
     Dates: start: 2015, end: 201602

REACTIONS (14)
  - Procedural hypertension [Recovered/Resolved]
  - Sjogren^s syndrome [Unknown]
  - Hypothyroidism [Unknown]
  - Cataract [Unknown]
  - Nasal mucosal discolouration [Unknown]
  - Raynaud^s phenomenon [Unknown]
  - Hypertension [Recovered/Resolved]
  - Colitis ulcerative [Recovered/Resolved]
  - Seizure [Recovered/Resolved]
  - Dry eye [Unknown]
  - Nasal congestion [Unknown]
  - Arthralgia [Unknown]
  - Paraesthesia oral [Recovered/Resolved]
  - Headache [Unknown]

NARRATIVE: CASE EVENT DATE: 2013
